FAERS Safety Report 7835160-3 (Version None)
Quarter: 2011Q4

REPORT INFORMATION
  Report Type: 
  Country: None (occurrence: None)
  Receive Date: 20111024
  Receipt Date: 20110913
  Transmission Date: 20120403
  Serious: Yes (Hospitalization)
  Sender: FDA-Public Use
  Company Number: PHHY2011BR86206

PATIENT
  Age: 47 Year
  Sex: Female

DRUGS (7)
  1. CAPTOPRIL [Suspect]
     Dosage: 50 MG, UNK
     Route: 048
  2. METOPROLOL TARTRATE [Concomitant]
  3. ENALAPRIL MALEATE [Suspect]
     Indication: HYPERTENSION
     Route: 048
  4. HYDROCHLOROTHIAZIDE [Concomitant]
     Dosage: 25 MG, QD
  5. LOSARTAN POTASSIUM [Concomitant]
     Dosage: 100 MG, BID
  6. AMLODIPINE BESYLATE [Suspect]
     Indication: HYPERTENSION
     Dosage: 5 MG, UNK
     Route: 048
  7. CLONIDINE [Concomitant]
     Dosage: 100 MG, BID

REACTIONS (7)
  - HEADACHE [None]
  - HYPERTENSIVE ENCEPHALOPATHY [None]
  - VISION BLURRED [None]
  - HYPERTENSIVE CRISIS [None]
  - DEPRESSED LEVEL OF CONSCIOUSNESS [None]
  - SOMNOLENCE [None]
  - CONVULSION [None]
